FAERS Safety Report 11113228 (Version 1)
Quarter: 2015Q2

REPORT INFORMATION
  Report Type: Spontaneous
  Country: HR (occurrence: HR)
  Receive Date: 20150514
  Receipt Date: 20150514
  Transmission Date: 20150821
  Serious: Yes (Other)
  Sender: FDA-Public Use
  Company Number: HR-GE HEALTHCARE MEDICAL DIAGNOSTICS-VISP-E2B_00000116

PATIENT
  Age: 71 Year
  Sex: Female

DRUGS (2)
  1. VISIPAQUE [Suspect]
     Active Substance: IODIXANOL
     Indication: PRODUCT USED FOR UNKNOWN INDICATION
     Route: 042
     Dates: start: 20150408, end: 20150408
  2. VISIPAQUE [Suspect]
     Active Substance: IODIXANOL
     Indication: DIAGNOSTIC PROCEDURE

REACTIONS (6)
  - Disorientation [Recovering/Resolving]
  - Suffocation feeling [Recovering/Resolving]
  - Erythema [Recovering/Resolving]
  - Procedural hypotension [Recovering/Resolving]
  - Pruritus [Recovering/Resolving]
  - Anaphylactic reaction [Recovering/Resolving]

NARRATIVE: CASE EVENT DATE: 20150408
